FAERS Safety Report 16311011 (Version 1)
Quarter: 2019Q2

REPORT INFORMATION
  Report Type: Spontaneous
  Country: US (occurrence: US)
  Receive Date: 20190514
  Receipt Date: 20190514
  Transmission Date: 20190711
  Serious: Yes (Other)
  Sender: FDA-Public Use
  Company Number: US-GLAXOSMITHKLINE-US2019GSK084831

PATIENT
  Age: 70 Year
  Sex: Male

DRUGS (21)
  1. PREDNISOLONE. [Concomitant]
     Active Substance: PREDNISOLONE
     Indication: IRITIS
     Dosage: STEROID TAPER
     Route: 061
  2. BRIMONIDINE [Concomitant]
     Active Substance: BRIMONIDINE TARTRATE
     Indication: VITRITIS
  3. DORZOLAMIDE + TIMOLOL [Concomitant]
     Indication: IRITIS
  4. GANCICLOVIR. [Concomitant]
     Active Substance: GANCICLOVIR
     Indication: HERPES ZOSTER MENINGOENCEPHALITIS
     Dosage: 190 MG, BID
     Route: 042
  5. ACYCLOVIR. [Suspect]
     Active Substance: ACYCLOVIR
     Indication: HERPES ZOSTER MENINGOENCEPHALITIS
     Dosage: 10 MG/KG, TID
     Route: 042
  6. ACYCLOVIR. [Suspect]
     Active Substance: ACYCLOVIR
     Dosage: 15 MG/KG, UNK
     Route: 042
  7. VALACYCLOVIR [Suspect]
     Active Substance: VALACYCLOVIR HYDROCHLORIDE
     Dosage: 1 G, TID
  8. COUMADIN [Concomitant]
     Active Substance: WARFARIN SODIUM
     Indication: ATRIAL FIBRILLATION
     Dosage: UNK
  9. PREDNISOLONE. [Concomitant]
     Active Substance: PREDNISOLONE
     Indication: VITRITIS
  10. BRIMONIDINE [Concomitant]
     Active Substance: BRIMONIDINE TARTRATE
     Indication: INTRAOCULAR PRESSURE INCREASED
     Dosage: UNK
     Route: 061
  11. VALACYCLOVIR [Suspect]
     Active Substance: VALACYCLOVIR HYDROCHLORIDE
     Dosage: 2 G, TID
  12. DORZOLAMIDE + TIMOLOL [Concomitant]
     Indication: VITRITIS
  13. ATORVASTATIN [Concomitant]
     Active Substance: ATORVASTATIN
     Indication: ATRIAL FIBRILLATION
  14. DORZOLAMIDE + TIMOLOL [Concomitant]
     Indication: INTRAOCULAR PRESSURE INCREASED
     Dosage: UNK, BID
  15. VALACYCLOVIR [Suspect]
     Active Substance: VALACYCLOVIR HYDROCHLORIDE
     Indication: HERPES ZOSTER MENINGOENCEPHALITIS
     Dosage: 1 G, BID
     Route: 048
  16. ATORVASTATIN [Concomitant]
     Active Substance: ATORVASTATIN
     Indication: HYPERLIPIDAEMIA
  17. COUMADIN [Concomitant]
     Active Substance: WARFARIN SODIUM
     Indication: HYPERLIPIDAEMIA
  18. VALGANCICLOVIR. [Concomitant]
     Active Substance: VALGANCICLOVIR
     Indication: HERPES ZOSTER MENINGOENCEPHALITIS
     Dosage: 450 MG, BID
     Route: 048
  19. DILTIAZEM. [Concomitant]
     Active Substance: DILTIAZEM
     Indication: ATRIAL FIBRILLATION
  20. DILTIAZEM. [Concomitant]
     Active Substance: DILTIAZEM
     Indication: HYPERLIPIDAEMIA
  21. BRIMONIDINE [Concomitant]
     Active Substance: BRIMONIDINE TARTRATE
     Indication: IRITIS

REACTIONS (5)
  - Drug ineffective [Unknown]
  - Vasculitis [Recovering/Resolving]
  - Pathogen resistance [Unknown]
  - Necrotising retinitis [Recovering/Resolving]
  - Disease recurrence [Recovering/Resolving]
